FAERS Safety Report 17545317 (Version 1)
Quarter: 2020Q1

REPORT INFORMATION
  Report Type: Spontaneous
  Country: GB (occurrence: GB)
  Receive Date: 20200316
  Receipt Date: 20200316
  Transmission Date: 20200409
  Serious: Yes (Other)
  Sender: FDA-Public Use
  Company Number: GB-PFIZER INC-2020107426

PATIENT
  Age: 76 Year
  Sex: Female

DRUGS (1)
  1. PACLITAXEL. [Suspect]
     Active Substance: PACLITAXEL
     Dosage: 15.5 ML, UNK
     Dates: start: 20190808

REACTIONS (2)
  - Dyspnoea [Unknown]
  - Deafness [Unknown]

NARRATIVE: CASE EVENT DATE: 20190808
